FAERS Safety Report 5220897-5 (Version None)
Quarter: 2007Q1

REPORT INFORMATION
  Report Type: 
  Country: None (occurrence: None)
  Receive Date: 20070126
  Receipt Date: 20070117
  Transmission Date: 20070707
  Serious: Yes (Death, Life-Threatening, Hospitalization)
  Sender: FDA-Public Use
  Company Number: FR-GLAXOSMITHKLINE-B0454981A

PATIENT
  Age: 74 Year
  Sex: Female

DRUGS (8)
  1. ZEFFIX [Suspect]
     Indication: HEPATITIS B
     Dosage: 100MG PER DAY
     Route: 048
     Dates: start: 20060601, end: 20061023
  2. PARACETAMOL [Suspect]
     Route: 048
     Dates: end: 20061003
  3. HYZAAR [Concomitant]
     Route: 048
     Dates: end: 20061003
  4. TRIMETAZIDINE [Concomitant]
     Dosage: 20MG TWICE PER DAY
     Route: 048
     Dates: end: 20061003
  5. CACIT D3 [Concomitant]
     Route: 048
     Dates: end: 20061003
  6. ACTONEL [Concomitant]
     Dosage: 35MG WEEKLY
     Route: 065
     Dates: end: 20061003
  7. DOLIPRANE [Concomitant]
     Dates: end: 20061003
  8. VIREAD [Concomitant]
     Route: 048
     Dates: start: 20061003

REACTIONS (8)
  - COAGULOPATHY [None]
  - HAEMORRHAGE [None]
  - HEPATITIS FULMINANT [None]
  - HYPOALBUMINAEMIA [None]
  - JAUNDICE [None]
  - PLATELET COUNT DECREASED [None]
  - PROTHROMBIN LEVEL DECREASED [None]
  - TRANSAMINASES INCREASED [None]
